FAERS Safety Report 4462710-X (Version None)
Quarter: 2004Q3

REPORT INFORMATION
  Report Type: 
  Country: None (occurrence: None)
  Receive Date: 20040927
  Receipt Date: 20040913
  Transmission Date: 20050211
  Serious: Yes (Other)
  Sender: FDA-Public Use
  Company Number: 2004065893

PATIENT
  Age: 66 Year
  Sex: Male
  Weight: 117.9352 kg

DRUGS (4)
  1. TIKOSYN [Suspect]
     Indication: ATRIAL FIBRILLATION
     Dosage: 1000 MCG (500 MCG, 2 IN 1 D), ORAL
     Route: 048
     Dates: start: 20010101
  2. WARFARIN (WARFARIN) [Concomitant]
  3. ATENOLOL [Concomitant]
  4. VALSARTAN (VALSARTAN) [Concomitant]

REACTIONS (1)
  - COLON NEOPLASM [None]
